FAERS Safety Report 22586890 (Version 1)
Quarter: 2023Q2

REPORT INFORMATION
  Report Type: Spontaneous
  Country: US (occurrence: US)
  Receive Date: 20230611
  Receipt Date: 20230611
  Transmission Date: 20230722
  Serious: Yes (Other)
  Sender: FDA-Public Use
  Company Number: US-BRISTOL-MYERS SQUIBB COMPANY-2023-081276

PATIENT
  Age: 77 Year
  Sex: Female

DRUGS (26)
  1. REVLIMID [Suspect]
     Active Substance: LENALIDOMIDE
     Indication: Plasma cell myeloma
     Route: 048
     Dates: start: 20220913, end: 20220919
  2. REVLIMID [Suspect]
     Active Substance: LENALIDOMIDE
     Route: 048
     Dates: start: 20220919, end: 20221021
  3. REVLIMID [Suspect]
     Active Substance: LENALIDOMIDE
     Dosage: 28 CT
     Route: 048
     Dates: start: 20230522
  4. DEXAMETHASONE [Concomitant]
     Active Substance: DEXAMETHASONE
     Indication: Product used for unknown indication
     Route: 048
     Dates: start: 20221021
  5. AMLODIPINE BESYLATE [Concomitant]
     Active Substance: AMLODIPINE BESYLATE
     Indication: Product used for unknown indication
     Route: 048
     Dates: start: 20220913, end: 20220926
  6. CITALOPRAM HYDROBROMIDE [Concomitant]
     Active Substance: CITALOPRAM HYDROBROMIDE
     Indication: Product used for unknown indication
     Route: 048
     Dates: start: 20221027
  7. CITALOPRAM HYDROBROMIDE [Concomitant]
     Active Substance: CITALOPRAM HYDROBROMIDE
     Route: 048
     Dates: start: 20220913, end: 20220926
  8. DOCUSATE SODIUM [Concomitant]
     Active Substance: DOCUSATE SODIUM
     Indication: Product used for unknown indication
     Route: 048
     Dates: start: 20221027
  9. DOCUSATE SODIUM [Concomitant]
     Active Substance: DOCUSATE SODIUM
     Route: 048
     Dates: start: 20220913, end: 20220926
  10. FAMOTIDINE [Concomitant]
     Active Substance: FAMOTIDINE
     Indication: Product used for unknown indication
     Route: 048
     Dates: start: 20220913, end: 20220926
  11. LEVOTHYROXINE SODIUM [Concomitant]
     Active Substance: LEVOTHYROXINE SODIUM
     Indication: Product used for unknown indication
     Route: 048
     Dates: start: 20220913
  12. METOPROLOL TARTRATE [Concomitant]
     Active Substance: METOPROLOL TARTRATE
     Indication: Product used for unknown indication
     Route: 048
     Dates: start: 20220913, end: 20221027
  13. OLANZAPINE [Concomitant]
     Active Substance: OLANZAPINE
     Indication: Product used for unknown indication
     Route: 048
     Dates: start: 20220913, end: 20220926
  14. OXYCODONE HYDROCHLORIDE [Concomitant]
     Active Substance: OXYCODONE HYDROCHLORIDE
     Indication: Product used for unknown indication
     Route: 048
     Dates: start: 20220913, end: 20220926
  15. VITAMINS [Concomitant]
     Active Substance: VITAMINS
     Indication: Product used for unknown indication
     Dosage: DAILY VALUE MULTIVITAMIN
     Route: 048
     Dates: start: 20220926
  16. LOSARTAN POTASSIUM [Concomitant]
     Active Substance: LOSARTAN POTASSIUM
     Indication: Product used for unknown indication
     Route: 048
     Dates: start: 20220926, end: 20221027
  17. TYLENOL EXTRA STRENGTH [Concomitant]
     Active Substance: ACETAMINOPHEN
     Indication: Product used for unknown indication
     Dosage: PRN
     Route: 048
     Dates: start: 20220926
  18. LIDOCAINE [Concomitant]
     Active Substance: LIDOCAINE
     Indication: Product used for unknown indication
     Dosage: 1ST MEDX/EXTERNAL PATCH?4-0.025-5
     Route: 048
     Dates: start: 20220926
  19. HYZAAR [Concomitant]
     Active Substance: HYDROCHLOROTHIAZIDE\LOSARTAN POTASSIUM
     Indication: Product used for unknown indication
     Dosage: 100-25 MG
     Route: 048
     Dates: start: 20221027
  20. PANTOPRAZOLE SODIUM [Concomitant]
     Active Substance: PANTOPRAZOLE SODIUM
     Indication: Product used for unknown indication
     Dosage: EVERY 12 HR
     Route: 048
     Dates: start: 20221027
  21. SUCRALFATE [Concomitant]
     Active Substance: SUCRALFATE
     Indication: Product used for unknown indication
     Route: 048
     Dates: start: 20221027
  22. VALACYCLOVIR HYDROCHLORIDE [Concomitant]
     Active Substance: VALACYCLOVIR HYDROCHLORIDE
     Indication: Product used for unknown indication
     Route: 048
     Dates: start: 20221027
  23. ASPIRIN [Concomitant]
     Active Substance: ASPIRIN
     Indication: Product used for unknown indication
     Dosage: DELAYED RELEASE
     Route: 048
     Dates: start: 20221027
  24. ONDANSETRON [Concomitant]
     Active Substance: ONDANSETRON
     Indication: Product used for unknown indication
     Dosage: DISINTEGRATE?PRN
     Route: 048
     Dates: start: 20221027
  25. DARZALEX FASPRO [Concomitant]
     Active Substance: DARATUMUMAB\HYALURONIDASE-FIHJ
     Indication: Product used for unknown indication
     Dosage: 1800-3000
     Route: 058
     Dates: start: 20221027
  26. ALVOGEN LENALIDOMIDE [Concomitant]
     Indication: Product used for unknown indication
     Dosage: AS DIRECTED
     Route: 048
     Dates: start: 20221114, end: 20230522

REACTIONS (7)
  - Decreased appetite [Recovering/Resolving]
  - Dysgeusia [Unknown]
  - Gallbladder disorder [Unknown]
  - Constipation [Recovering/Resolving]
  - Diarrhoea [Recovering/Resolving]
  - Diverticulitis [Unknown]
  - Pancytopenia [Recovering/Resolving]
